FAERS Safety Report 4659356-7 (Version None)
Quarter: 2005Q2

REPORT INFORMATION
  Report Type: 
  Country: None (occurrence: None)
  Receive Date: 20050510
  Receipt Date: 20050428
  Transmission Date: 20051028
  Serious: Yes (Hospitalization)
  Sender: FDA-Public Use
  Company Number: 05P-062-0289378-00

PATIENT
  Age: 37 Year
  Sex: Female
  Weight: 90 kg

DRUGS (6)
  1. HUMIRA [Suspect]
     Indication: RHEUMATOID ARTHRITIS
     Dosage: 40 MG, 1 IN 2 WK, SUBCUTANEOUS
     Route: 058
     Dates: start: 20031113, end: 20041221
  2. COMERCIAL HUMIRA [Concomitant]
  3. RADIOIODINE THERAPY [Concomitant]
  4. L THYROXCIN [Concomitant]
  5. VINCAMIN [Concomitant]
  6. DECORTIN 20 [Concomitant]

REACTIONS (11)
  - ATELECTASIS [None]
  - CHEST PAIN [None]
  - HAEMOPTYSIS [None]
  - HEPATOCELLULAR DAMAGE [None]
  - HEPATOTOXICITY [None]
  - IMMUNE SYSTEM DISORDER [None]
  - MENIERE'S DISEASE [None]
  - NEPHROPATHY TOXIC [None]
  - PLEURISY [None]
  - PNEUMONITIS [None]
  - RENAL FAILURE [None]
